FAERS Safety Report 16826551 (Version 1)
Quarter: 2019Q3

REPORT INFORMATION
  Report Type: Spontaneous
  Country: US (occurrence: US)
  Receive Date: 20190919
  Receipt Date: 20190919
  Transmission Date: 20191005
  Serious: No
  Sender: FDA-Public Use
  Company Number: US-MYLANLABS-2019M1082940

PATIENT
  Age: 67 Year
  Sex: Female
  Weight: 82 kg

DRUGS (1)
  1. PROCTOFOAM HC [Suspect]
     Active Substance: HYDROCORTISONE ACETATE\PRAMOXINE HYDROCHLORIDE
     Indication: HAEMORRHOIDS
     Dosage: 1 DOSAGE FORM, BID
     Route: 054
     Dates: start: 20190830, end: 20190830

REACTIONS (1)
  - Proctalgia [Not Recovered/Not Resolved]

NARRATIVE: CASE EVENT DATE: 20190830
